FAERS Safety Report 24814807 (Version 7)
Quarter: 2025Q2

REPORT INFORMATION
  Report Type: Report from Study
  Country: US (occurrence: US)
  Receive Date: 20250107
  Receipt Date: 20250416
  Transmission Date: 20250716
  Serious: Yes (Hospitalization, Other)
  Sender: JOHNSON AND JOHNSON
  Company Number: US-JNJFOC-20241274656

PATIENT
  Age: 82 Year
  Sex: Female

DRUGS (4)
  1. STELARA [Suspect]
     Active Substance: USTEKINUMAB
     Indication: Colitis ulcerative
     Route: 058
     Dates: start: 202409
  2. STELARA [Suspect]
     Active Substance: USTEKINUMAB
     Route: 058
  3. STELARA [Suspect]
     Active Substance: USTEKINUMAB
     Indication: Colitis ulcerative
     Route: 058
  4. STELARA [Suspect]
     Active Substance: USTEKINUMAB

REACTIONS (13)
  - Diverticulitis [Unknown]
  - Clostridium difficile infection [Recovered/Resolved]
  - Colitis ulcerative [Recovering/Resolving]
  - Irritable bowel syndrome [Recovering/Resolving]
  - Device issue [Unknown]
  - Accidental exposure to product [Unknown]
  - Device connection issue [Unknown]
  - Needle issue [Unknown]
  - Device malfunction [Unknown]
  - Needle issue [Unknown]
  - Device breakage [Unknown]
  - Product administration error [Unknown]
  - Product dose omission issue [Unknown]

NARRATIVE: CASE EVENT DATE: 20240101
